FAERS Safety Report 6936417-0 (Version None)
Quarter: 2010Q3

REPORT INFORMATION
  Report Type: 
  Country: None (occurrence: None)
  Receive Date: 20100818
  Receipt Date: 20100805
  Transmission Date: 20110219
  Serious: Yes (Other)
  Sender: FDA-Public Use
  Company Number: 7012090

PATIENT
  Age: 44 Year
  Sex: Female

DRUGS (9)
  1. REBIF [Suspect]
     Indication: MULTIPLE SCLEROSIS
     Dosage: 3 IN 1 WK, SUBCUTANEOUS; 44 MCG, 3 IN 1 WK, SUBCUTANEOUS
     Route: 058
     Dates: start: 20100607, end: 20100701
  2. REBIF [Suspect]
     Indication: MULTIPLE SCLEROSIS
     Dosage: 3 IN 1 WK, SUBCUTANEOUS; 44 MCG, 3 IN 1 WK, SUBCUTANEOUS
     Route: 058
     Dates: start: 20100701
  3. OMEPRAZOLE [Concomitant]
  4. CELEXA [Concomitant]
  5. OXYBUTYNIN CHLORIDE [Concomitant]
  6. TIZANIDINE HCL [Concomitant]
  7. VITAMIN B12 [Concomitant]
  8. IRON (IRON) [Concomitant]
  9. PREVACID [Concomitant]

REACTIONS (8)
  - ABDOMINAL PAIN [None]
  - DIARRHOEA [None]
  - GASTROINTESTINAL INFLAMMATION [None]
  - INFLAMMATORY BOWEL DISEASE [None]
  - NAUSEA [None]
  - RETCHING [None]
  - SCAR [None]
  - TERMINAL INSOMNIA [None]
